FAERS Safety Report 4847656-7 (Version None)
Quarter: 2005Q4

REPORT INFORMATION
  Report Type: 
  Country: None (occurrence: None)
  Receive Date: 20051205
  Receipt Date: 20051020
  Transmission Date: 20060501
  Serious: Yes (Hospitalization, Other)
  Sender: FDA-Public Use
  Company Number: 2005145166

PATIENT
  Age: 73 Year
  Sex: Female

DRUGS (1)
  1. AROMASIN [Suspect]
     Indication: BREAST CANCER
     Dosage: ORAL
     Route: 048

REACTIONS (3)
  - AMNESIA [None]
  - DIPLEGIA [None]
  - TRANSIENT ISCHAEMIC ATTACK [None]
